FAERS Safety Report 19903529 (Version 1)
Quarter: 2021Q4

REPORT INFORMATION
  Report Type: Spontaneous
  Country: FR (occurrence: FR)
  Receive Date: 20211001
  Receipt Date: 20211001
  Transmission Date: 20220303
  Serious: Yes (Hospitalization)
  Sender: FDA-Public Use
  Company Number: None

PATIENT
  Age: 45 Year
  Sex: Female
  Weight: 55 kg

DRUGS (5)
  1. GONAL-F [Suspect]
     Active Substance: FOLLITROPIN
     Indication: Infertility
     Dosage: POWDER AND SOLVENT FOR INJECTABLE SOLUTION
     Route: 058
     Dates: start: 201007, end: 201007
  2. UROFOLLITROPIN [Suspect]
     Active Substance: UROFOLLITROPIN
     Indication: Infertility
     Dosage: 225 IU DAILY DURING 10 DAYS (CURE)?POWDER AND SOLVENT FOR INJECTABLE SOLUTION
     Route: 058
     Dates: start: 201004, end: 2010
  3. ETHINYL ESTRADIOL\LEVONORGESTREL [Suspect]
     Active Substance: ETHINYL ESTRADIOL\LEVONORGESTREL
     Indication: Contraception
     Route: 048
     Dates: start: 201107, end: 201112
  4. ETHINYL ESTRADIOL\LEVONORGESTREL [Suspect]
     Active Substance: ETHINYL ESTRADIOL\LEVONORGESTREL
     Indication: Contraception
     Route: 048
     Dates: start: 2002, end: 2007
  5. DESOGESTREL\ETHINYL ESTRADIOL [Suspect]
     Active Substance: DESOGESTREL\ETHINYL ESTRADIOL
     Indication: Contraception
     Route: 048
     Dates: start: 1996, end: 2005

REACTIONS (1)
  - Meningioma benign [Recovered/Resolved with Sequelae]

NARRATIVE: CASE EVENT DATE: 20160101
